FAERS Safety Report 18457007 (Version 5)
Quarter: 2021Q4

REPORT INFORMATION
  Report Type: Spontaneous
  Country: US (occurrence: US)
  Receive Date: 20201103
  Receipt Date: 20211208
  Transmission Date: 20220303
  Serious: No
  Sender: FDA-Public Use
  Company Number: US-PFIZER INC-2020372784

PATIENT
  Age: 16 Year
  Sex: Male
  Weight: 81.65 kg

DRUGS (7)
  1. GENOTROPIN [Suspect]
     Active Substance: SOMATROPIN
     Indication: Short stature
     Dosage: 2.2 MG, 6 DAYS A WEEK
     Dates: start: 20180607, end: 201806
  2. GENOTROPIN [Suspect]
     Active Substance: SOMATROPIN
     Dosage: UNK
     Dates: start: 201806
  3. VYVANSE [Concomitant]
     Active Substance: LISDEXAMFETAMINE DIMESYLATE
     Indication: Attention deficit hyperactivity disorder
     Dosage: 40 MG, DAILY
     Dates: start: 2016
  4. FOCALIN [Concomitant]
     Active Substance: DEXMETHYLPHENIDATE HYDROCHLORIDE
     Indication: Attention deficit hyperactivity disorder
     Dosage: 5 MG, AS NEEDED (WHILE IN SCHOOL)
     Dates: start: 2012
  5. MELATONIN [Concomitant]
     Active Substance: MELATONIN
     Indication: Sleep disorder
     Dosage: 3 MG, 1X/DAY (AT NIGHT)
     Dates: start: 2019
  6. ESCITALOPRAM OXALATE [Concomitant]
     Active Substance: ESCITALOPRAM OXALATE
     Indication: Depression
     Dosage: UNK, 1X/DAY (AT NIGHT)
     Dates: start: 201903
  7. GUANFACINE [Concomitant]
     Active Substance: GUANFACINE
     Indication: Impulsive behaviour
     Dosage: UNK, 1X/DAY (AT NIGHT)
     Dates: start: 2017

REACTIONS (4)
  - Drug dose omission by device [Unknown]
  - Injection site pain [Unknown]
  - Device issue [Unknown]
  - Device information output issue [Unknown]

NARRATIVE: CASE EVENT DATE: 20201001
